FAERS Safety Report 12809781 (Version 1)
Quarter: 2016Q4

REPORT INFORMATION
  Report Type: Other
  Country: US (occurrence: US)
  Receive Date: 20161005
  Receipt Date: 20161005
  Transmission Date: 20170207
  Serious: Yes (Other)
  Sender: FDA-Public Use
  Company Number: US-SHIRE-US201612301

PATIENT
  Age: 65 Year
  Sex: Female

DRUGS (3)
  1. GATTEX [Suspect]
     Active Substance: TEDUGLUTIDE\WATER
     Dosage: 0.19 ML, QOD
     Route: 058
     Dates: start: 2016
  2. GATTEX [Suspect]
     Active Substance: TEDUGLUTIDE\WATER
     Indication: SHORT-BOWEL SYNDROME
     Dosage: 0.19 ML, 1X/DAY:QD
     Route: 058
     Dates: start: 20160829
  3. GATTEX [Suspect]
     Active Substance: TEDUGLUTIDE\WATER
     Dosage: 0.38 ML, 1X/DAY:QD
     Route: 058
     Dates: start: 2016

REACTIONS (11)
  - Peripheral swelling [Unknown]
  - Obstruction [Unknown]
  - Urine output decreased [Recovering/Resolving]
  - Flatulence [Unknown]
  - Nausea [Unknown]
  - Weight increased [Not Recovered/Not Resolved]
  - Incorrect dose administered [Unknown]
  - Blood pressure increased [Not Recovered/Not Resolved]
  - Gastrointestinal stoma output abnormal [Unknown]
  - Headache [Unknown]
  - Abdominal pain upper [Unknown]

NARRATIVE: CASE EVENT DATE: 2016
